FAERS Safety Report 9912942 (Version 1)
Quarter: 2014Q1

REPORT INFORMATION
  Report Type: Spontaneous
  Country: DE (occurrence: None)
  Receive Date: 20140214
  Receipt Date: 20140214
  Transmission Date: 20141002
  Serious: Yes (Life-Threatening)
  Sender: FDA-Public Use
  Company Number: FK201400429

PATIENT
  Age: 76 Year
  Sex: Male
  Weight: 81 kg

DRUGS (1)
  1. CEFUROXIM [Suspect]
     Indication: TRANSURETHRAL BLADDER RESECTION
     Dosage: 1 IN 1 D ( NOT OTHERWISE SPECIFIED)
     Route: 042
     Dates: start: 20140128, end: 20140128

REACTIONS (3)
  - Anaphylactic shock [None]
  - Bradycardia [None]
  - Cardiac arrest [None]
